FAERS Safety Report 6955616-5 (Version None)
Quarter: 2010Q3

REPORT INFORMATION
  Report Type: 
  Country: None (occurrence: None)
  Receive Date: 20100830
  Receipt Date: 20100819
  Transmission Date: 20110219
  Serious: Yes (Other)
  Sender: FDA-Public Use
  Company Number: US-PFIZER INC-2010102665

PATIENT
  Sex: Female
  Weight: 49.887 kg

DRUGS (4)
  1. OGEN [Suspect]
     Indication: ARTIFICIAL MENOPAUSE
     Dosage: UNK
  2. ESTROPIPATE [Suspect]
     Dosage: UNK
  3. PREMARIN [Suspect]
     Dosage: UNK
  4. CARDIZEM [Concomitant]

REACTIONS (8)
  - BLOOD CHOLESTEROL INCREASED [None]
  - BREAST TENDERNESS [None]
  - DRUG INEFFECTIVE [None]
  - FEELING ABNORMAL [None]
  - HEADACHE [None]
  - HYPERTENSION [None]
  - HYPOTHYROIDISM [None]
  - PERIPHERAL COLDNESS [None]
